FAERS Safety Report 5894805-8 (Version None)
Quarter: 2008Q3

REPORT INFORMATION
  Report Type: 
  Country: None (occurrence: None)
  Receive Date: 20080829
  Receipt Date: 20080602
  Transmission Date: 20090109
  Serious: Yes (Other)
  Sender: FDA-Public Use
  Company Number: 0806560US

PATIENT
  Age: 90 Year
  Sex: Female

DRUGS (2)
  1. SANCTURA XR [Suspect]
     Indication: HYPERTONIC BLADDER
     Dosage: SINGLE, ORAL
     Route: 048
     Dates: start: 20080602, end: 20080602
  2. DYNACIRC [Concomitant]

REACTIONS (3)
  - FATIGUE [None]
  - HEART RATE INCREASED [None]
  - SYNCOPE [None]
